FAERS Safety Report 5519913-2 (Version None)
Quarter: 2007Q4

REPORT INFORMATION
  Report Type: 
  Country: None (occurrence: None)
  Receive Date: 20071116
  Receipt Date: 20071112
  Transmission Date: 20080405
  Serious: Yes (Other)
  Sender: FDA-Public Use
  Company Number: PHEH2005US09866

PATIENT

DRUGS (12)
  1. DECADRON [Concomitant]
  2. THALIDOMIDE [Concomitant]
     Indication: MULTIPLE MYELOMA
     Dosage: DAILY
  3. ZOMETA [Suspect]
     Indication: MULTIPLE MYELOMA
     Dosage: 4MG Q4WK
     Route: 042
     Dates: start: 20050118, end: 20050814
  4. AVANDIA [Concomitant]
     Indication: DIABETES MELLITUS
  5. LISINOPRIL [Concomitant]
     Indication: HYPERTENSION
     Dosage: 10 MG, QD
  6. GLUCOTROL [Concomitant]
     Indication: DIABETES MELLITUS
     Dosage: 2.5 UNK, BID
  7. CYMBALTA [Concomitant]
     Indication: NEUROPATHY
     Dosage: DAILY
  8. DEXAMETHASONE [Concomitant]
     Indication: MULTIPLE MYELOMA
     Dosage: LOW DOSE DAILY
  9. ASPIRIN [Concomitant]
     Dosage: DAILY
  10. ZANAFLEX [Concomitant]
     Dosage: DAILY
  11. DOXYCYCLINE [Concomitant]
     Dosage: 200 MG, UNK
  12. PROTONIX [Concomitant]

REACTIONS (5)
  - GINGIVITIS [None]
  - OEDEMA MOUTH [None]
  - OSTEONECROSIS [None]
  - PAIN [None]
  - PAIN IN JAW [None]
